FAERS Safety Report 7414465-4 (Version None)
Quarter: 2011Q2

REPORT INFORMATION
  Report Type: 
  Country: None (occurrence: None)
  Receive Date: 20110414
  Receipt Date: 20110406
  Transmission Date: 20111010
  Serious: Yes (Other)
  Sender: FDA-Public Use
  Company Number: US-US-EMD SERONO, INC.-7052698

PATIENT
  Sex: Male

DRUGS (8)
  1. BETASERON [Suspect]
     Indication: MULTIPLE SCLEROSIS
  2. COPAXONE [Suspect]
     Indication: MULTIPLE SCLEROSIS
  3. BACLOFEN [Concomitant]
     Indication: MUSCLE SPASMS
  4. THYROXINE [Concomitant]
     Indication: HYPOTHYROIDISM
  5. REQUIP [Concomitant]
     Indication: RESTLESS LEGS SYNDROME
  6. ATIVAN [Concomitant]
     Indication: HYPERTENSION
  7. AVONEX [Suspect]
     Indication: MULTIPLE SCLEROSIS
  8. NOVANTRONE [Suspect]
     Indication: MULTIPLE SCLEROSIS
     Dates: end: 20020101

REACTIONS (1)
  - COLON CANCER [None]
